FAERS Safety Report 9637860 (Version 2)
Quarter: 2013Q4

REPORT INFORMATION
  Report Type: Report from Study
  Country: US (occurrence: US)
  Receive Date: 20131022
  Receipt Date: 20131022
  Transmission Date: 20140711
  Serious: Yes (Hospitalization)
  Sender: FDA-Public Use
  Company Number: US-ROCHE-1226236

PATIENT
  Age: 48 Year
  Sex: Female
  Weight: 58.57 kg

DRUGS (9)
  1. HERCEPTIN [Suspect]
     Indication: BREAST CANCER METASTATIC
     Route: 042
     Dates: start: 201302
  2. HERCEPTIN [Suspect]
     Route: 042
     Dates: start: 201008, end: 201108
  3. PERJETA [Suspect]
     Indication: BREAST CANCER METASTATIC
     Route: 065
     Dates: start: 201302
  4. TAXOTERE [Concomitant]
     Indication: BREAST CANCER METASTATIC
     Route: 042
     Dates: start: 20130201, end: 20130330
  5. TAXOTERE [Concomitant]
     Dosage: 06 CYCLE
     Route: 042
     Dates: start: 201008, end: 201108
  6. ABRAXANE [Concomitant]
     Indication: BREAST CANCER METASTATIC
     Route: 042
     Dates: start: 201302, end: 201308
  7. PLAQUENIL [Concomitant]
     Route: 065
  8. DIGOXIN [Concomitant]
     Indication: TACHYCARDIA
     Route: 048
     Dates: start: 201302
  9. DIGOXIN [Concomitant]
     Indication: SICK SINUS SYNDROME

REACTIONS (10)
  - Tachycardia [Recovering/Resolving]
  - Sick sinus syndrome [Recovering/Resolving]
  - Hypotension [Recovered/Resolved]
  - Loss of consciousness [Recovered/Resolved]
  - Hypersomnia [Recovered/Resolved]
  - Hypoaesthesia [Recovered/Resolved]
  - Paraesthesia [Recovered/Resolved]
  - Fatigue [Recovering/Resolving]
  - Diarrhoea [Recovering/Resolving]
  - Vomiting [Recovering/Resolving]
